FAERS Safety Report 10771174 (Version 1)
Quarter: 2015Q1

REPORT INFORMATION
  Report Type: Report from Study
  Country: CA (occurrence: CA)
  Receive Date: 20150206
  Receipt Date: 20150206
  Transmission Date: 20150721
  Serious: Yes (Death, Hospitalization)
  Sender: FDA-Public Use
  Company Number: PHHY2015CA013858

PATIENT
  Age: 60 Year
  Sex: Female

DRUGS (2)
  1. SANDOSTATIN LAR DEPOT [Suspect]
     Active Substance: OCTREOTIDE ACETATE
     Indication: METASTASES TO PERITONEUM
     Dosage: 30 MG, QMO
     Route: 030
     Dates: start: 20150117
  2. SANDOSTATIN [Suspect]
     Active Substance: OCTREOTIDE ACETATE
     Indication: METASTASES TO PERITONEUM
     Dosage: UNK UG, BID
     Route: 058
     Dates: start: 20150117, end: 20150130

REACTIONS (5)
  - Respiratory disorder [Unknown]
  - Product use issue [Unknown]
  - Death [Fatal]
  - Terminal state [Unknown]
  - Malaise [Unknown]

NARRATIVE: CASE EVENT DATE: 20150202
